FAERS Safety Report 9474336 (Version 2)
Quarter: 2013Q4

REPORT INFORMATION
  Report Type: Spontaneous
  Country: DE (occurrence: DE)
  Receive Date: 20130823
  Receipt Date: 20131017
  Transmission Date: 20140711
  Serious: Yes (Hospitalization)
  Sender: FDA-Public Use
  Company Number: DE-TEVA-427605GER

PATIENT
  Sex: Male
  Weight: 75 kg

DRUGS (9)
  1. BACLOFEN-RATIOPHARM 25 MG TABLETTEN [Suspect]
     Indication: CRANIOCEREBRAL INJURY
     Dosage: 20 - 70 MG DAILY, VARIOUS DOSES
     Route: 048
     Dates: start: 1994, end: 2002
  2. DIAZEPAM [Interacting]
     Indication: CRANIOCEREBRAL INJURY
     Dosage: 2 - 3 DROPS 10 -12 TIMES DAILY AS NEEDED
     Route: 048
     Dates: start: 19961018, end: 20021219
  3. DIAZEPAM [Interacting]
     Route: 054
  4. PHENYTOIN [Concomitant]
     Indication: POST-TRAUMATIC EPILEPSY
     Dosage: 300 MILLIGRAM DAILY;
     Dates: start: 1993
  5. AKATINOL [Concomitant]
     Dosage: VARIOUS DOSING
     Dates: start: 1996, end: 2002
  6. IMIPRAMIN [Concomitant]
     Dosage: VARIOUS DOSING
     Dates: start: 1996, end: 2002
  7. ZOLOFT [Concomitant]
     Dosage: VARIOUS DOSING
     Dates: start: 1996, end: 2002
  8. TREVILOR [Concomitant]
     Dosage: VARIOUS DOSING
     Dates: start: 1996, end: 2002
  9. DOGMATIL [Concomitant]
     Dosage: VARIOUS DOSING
     Dates: start: 1996, end: 2002

REACTIONS (2)
  - Signet-ring cell carcinoma [Not Recovered/Not Resolved]
  - Drug interaction [Recovered/Resolved with Sequelae]
